FAERS Safety Report 9701689 (Version 1)
Quarter: 2013Q4

REPORT INFORMATION
  Report Type: Spontaneous
  Country: US (occurrence: US)
  Receive Date: 20131119
  Receipt Date: 20131119
  Transmission Date: 20140711
  Serious: Yes (Hospitalization, Other)
  Sender: FDA-Public Use
  Company Number: US-SAVIENT-2013S1000041

PATIENT
  Age: 30 Year
  Sex: Male

DRUGS (9)
  1. KRYSTEXXA [Suspect]
     Indication: GOUT
     Route: 042
     Dates: start: 201304, end: 201304
  2. KRYSTEXXA [Suspect]
     Route: 042
     Dates: start: 20130506, end: 20130506
  3. LANTUS [Concomitant]
     Indication: DIABETES MELLITUS
  4. ALBUTEROL [Concomitant]
     Indication: ASTHMA
  5. PROBENECID [Concomitant]
     Indication: PRODUCT USED FOR UNKNOWN INDICATION
  6. COLCHICINE [Concomitant]
     Indication: GOUT
  7. BENADRYL [Concomitant]
     Indication: ALLERGY PROPHYLAXIS
  8. PREDNISONE [Concomitant]
     Indication: ALLERGY PROPHYLAXIS
  9. SOLUMEDROL [Concomitant]
     Indication: ALLERGY PROPHYLAXIS
     Route: 042

REACTIONS (2)
  - Hypersensitivity [Recovered/Resolved]
  - Anaphylactic reaction [Recovered/Resolved]
